FAERS Safety Report 8078507-8 (Version None)
Quarter: 2012Q1

REPORT INFORMATION
  Report Type: 
  Country: None (occurrence: None)
  Receive Date: 20120127
  Receipt Date: 20120127
  Transmission Date: 20120608
  Serious: Yes (Hospitalization)
  Sender: FDA-Public Use
  Company Number: None

PATIENT
  Sex: Male
  Weight: 107.5 kg

DRUGS (2)
  1. CARBOPLATIN [Suspect]
     Dosage: 691 MG
     Dates: end: 20120117
  2. TAXOL [Suspect]
     Dosage: 462 MG
     Dates: end: 20120117

REACTIONS (8)
  - ASTHENIA [None]
  - FATIGUE [None]
  - ANAEMIA [None]
  - CONFUSIONAL STATE [None]
  - THROMBOCYTOPENIA [None]
  - DEHYDRATION [None]
  - NEUTROPENIA [None]
  - TREMOR [None]
